FAERS Safety Report 8351276-X (Version None)
Quarter: 2012Q2

REPORT INFORMATION
  Report Type: 
  Country: None (occurrence: None)
  Receive Date: 20120510
  Receipt Date: 20110914
  Transmission Date: 20120825
  Serious: No
  Sender: FDA-Public Use
  Company Number: US-TEVA-2011004870

PATIENT
  Sex: Male

DRUGS (3)
  1. NUVIGIL [Suspect]
     Route: 048
  2. NUVIGIL [Suspect]
     Route: 048
  3. NUVIGIL [Suspect]
     Route: 048
     Dates: end: 20110825

REACTIONS (11)
  - COUGH [None]
  - ANORECTAL DISCOMFORT [None]
  - GINGIVITIS [None]
  - PYREXIA [None]
  - PROCTALGIA [None]
  - HYPERSENSITIVITY [None]
  - OROPHARYNGEAL PAIN [None]
  - PULMONARY CONGESTION [None]
  - STOMATITIS [None]
  - HEART RATE INCREASED [None]
  - HYPERHIDROSIS [None]
